FAERS Safety Report 10952813 (Version 1)
Quarter: 2015Q1

REPORT INFORMATION
  Report Type: Spontaneous
  Country: US (occurrence: US)
  Receive Date: 20150325
  Receipt Date: 20150325
  Transmission Date: 20150721
  Serious: Yes (Hospitalization, Other)
  Sender: FDA-Public Use
  Company Number: US-SHIRE-US201501815

PATIENT
  Age: 14 Year
  Sex: Male
  Weight: 27.5 kg

DRUGS (4)
  1. ELAPRASE [Suspect]
     Active Substance: IDURSULFASE
     Indication: MUCOPOLYSACCHARIDOSIS
     Dosage: 13.7 MG, 1X/WEEK
     Route: 041
     Dates: start: 20130506
  2. SCOPOLAMINE                        /00008701/ [Concomitant]
     Active Substance: SCOPOLAMINE
     Indication: PRODUCT USED FOR UNKNOWN INDICATION
     Dosage: 1.5 MG, OTHER, 1 PATCH EVERY THIRD DAY
     Route: 062
  3. LMX                                /00033401/ [Concomitant]
     Indication: PREMEDICATION
     Dosage: UNK, OTHER (BEFORE INFUSIONS)
     Route: 061
  4. PEPCID                             /00305201/ [Concomitant]
     Active Substance: ALUMINUM HYDROXIDE\MAGNESIUM CARBONATE
     Indication: PRODUCT USED FOR UNKNOWN INDICATION
     Dosage: 10 MG, UNKNOWN
     Route: 065

REACTIONS (8)
  - Bacteraemia [Recovering/Resolving]
  - Pneumonia klebsiella [Recovered/Resolved]
  - Musculoskeletal discomfort [Recovering/Resolving]
  - Influenza [Recovering/Resolving]
  - Productive cough [Recovering/Resolving]
  - Pyrexia [Recovered/Resolved]
  - Dyspnoea [Recovering/Resolving]
  - Device related infection [Recovering/Resolving]

NARRATIVE: CASE EVENT DATE: 201502
